FAERS Safety Report 6058490-7 (Version None)
Quarter: 2009Q1

REPORT INFORMATION
  Report Type: 
  Country: None (occurrence: None)
  Receive Date: 20090130
  Receipt Date: 20090120
  Transmission Date: 20090719
  Serious: Yes (Other)
  Sender: FDA-Public Use
  Company Number: PHHY2008GB31488

PATIENT
  Sex: Male

DRUGS (1)
  1. CLOZARIL [Suspect]
     Indication: SCHIZOPHRENIA
     Dosage: UNK
     Dates: start: 20060220

REACTIONS (5)
  - EOSINOPHIL COUNT INCREASED [None]
  - HAEMOGLOBIN [None]
  - POOR PERSONAL HYGIENE [None]
  - TOOTH EXTRACTION [None]
  - WHITE BLOOD CELL COUNT [None]
